FAERS Safety Report 8335174-3 (Version None)
Quarter: 2012Q2

REPORT INFORMATION
  Report Type: 
  Country: None (occurrence: None)
  Receive Date: 20120503
  Receipt Date: 20120430
  Transmission Date: 20120825
  Serious: Yes (Other)
  Sender: FDA-Public Use
  Company Number: US-PFIZER INC-2012106748

PATIENT
  Sex: Male

DRUGS (1)
  1. LYRICA [Suspect]
     Dosage: UNK

REACTIONS (5)
  - SURGERY [None]
  - CATARACT [None]
  - ERECTILE DYSFUNCTION [None]
  - DIABETES MELLITUS [None]
  - CARDIAC DISORDER [None]
